FAERS Safety Report 4963291-4 (Version None)
Quarter: 2006Q2

REPORT INFORMATION
  Report Type: 
  Country: None (occurrence: None)
  Receive Date: 20060404
  Receipt Date: 20060404
  Transmission Date: 20061013
  Serious: Yes (Hospitalization)
  Sender: FDA-Public Use
  Company Number: None

PATIENT
  Age: 19 Year
  Sex: Female
  Weight: 78.0187 kg

DRUGS (1)
  1. ORTHO EVRA [Suspect]
     Dates: start: 20060101, end: 20060401

REACTIONS (1)
  - PULMONARY EMBOLISM [None]
